FAERS Safety Report 17783752 (Version 1)
Quarter: 2020Q2

REPORT INFORMATION
  Report Type: Spontaneous
  Country: US (occurrence: US)
  Receive Date: 20200513
  Receipt Date: 20200513
  Transmission Date: 20200714
  Serious: Yes (Hospitalization)
  Sender: FDA-Public Use
  Company Number: None

PATIENT
  Age: 65 Year
  Sex: Male
  Weight: 100.02 kg

DRUGS (1)
  1. ENOXAPARIN (ENOXAPARIN 100MG/ML INJ) [Suspect]
     Active Substance: ENOXAPARIN
     Indication: ATRIAL FIBRILLATION
     Route: 058
     Dates: start: 20191219, end: 20191221

REACTIONS (4)
  - Therapy interrupted [None]
  - Haemoglobin decreased [None]
  - Abdominal wall haematoma [None]
  - Respiratory failure [None]

NARRATIVE: CASE EVENT DATE: 20191221
